FAERS Safety Report 15985438 (Version 2)
Quarter: 2019Q2

REPORT INFORMATION
  Report Type: Spontaneous
  Country: FR (occurrence: FR)
  Receive Date: 20190220
  Receipt Date: 20190418
  Transmission Date: 20190711
  Serious: Yes (Hospitalization, Other)
  Sender: FDA-Public Use
  Company Number: FR-ABBVIE-19K-056-2670667-00

PATIENT
  Age: 68 Year
  Sex: Female
  Weight: 59 kg

DRUGS (2)
  1. NEBIVOLOL. [Concomitant]
     Active Substance: NEBIVOLOL
     Indication: HYPERTENSION
  2. HUMIRA [Suspect]
     Active Substance: ADALIMUMAB
     Indication: COLITIS ULCERATIVE
     Route: 058
     Dates: start: 20190130, end: 20190322

REACTIONS (11)
  - Oral contusion [Unknown]
  - Arrhythmia supraventricular [Not Recovered/Not Resolved]
  - Aortic valve incompetence [Unknown]
  - Loss of consciousness [Recovered/Resolved]
  - Fall [Unknown]
  - Skin wound [Unknown]
  - Syncope [Unknown]
  - Head injury [Unknown]
  - Dermabrasion [Unknown]
  - Dizziness [Unknown]
  - Palpitations [Unknown]

NARRATIVE: CASE EVENT DATE: 20190131
